FAERS Safety Report 17753652 (Version 1)
Quarter: 2020Q2

REPORT INFORMATION
  Report Type: Spontaneous
  Country: DK (occurrence: DK)
  Receive Date: 20200506
  Receipt Date: 20200506
  Transmission Date: 20200714
  Serious: Yes (Hospitalization)
  Sender: FDA-Public Use
  Company Number: NVSC2020DK120923

PATIENT
  Age: 92 Year
  Sex: Male

DRUGS (7)
  1. METHOTREXATE. [Suspect]
     Active Substance: METHOTREXATE
     Indication: SKIN DISORDER
     Dosage: 7.5 MG, QW (STYRKE: 2,5 MGDOSIS REDUCERET TIL 5 MG UGENTLIGT SIDEN AUG2019)
     Route: 048
     Dates: start: 20170728, end: 20191219
  2. LANSOPRAZOLE. [Concomitant]
     Active Substance: LANSOPRAZOLE
     Indication: GASTRIC ULCER
     Dosage: 30 MG, QD (STYRKE: 30 MG)
     Route: 048
     Dates: start: 20130529
  3. TESTOSTERON [Concomitant]
     Active Substance: TESTOSTERONE
     Indication: HORMONE THERAPY
     Dosage: 80 MG, QD (STYRKE: 40 MG)
     Route: 048
     Dates: start: 20170818
  4. OCULAC [Concomitant]
     Indication: DRY EYE
     Dosage: 1 GTT (STRYKE: 50 MG/ML)
     Route: 050
     Dates: start: 20180614
  5. FINASTERIDE. [Concomitant]
     Active Substance: FINASTERIDE
     Indication: DYSURIA
     Dosage: 5 MG, QD(STYRKE: 5 MG)
     Route: 048
     Dates: start: 20170901
  6. LATANOPROST. [Concomitant]
     Active Substance: LATANOPROST
     Indication: GLAUCOMA
     Dosage: 2 GTT, QD (STYRKE: 50 MIKROGRAM/ML)
     Route: 050
     Dates: start: 20130829
  7. PARACETAMOL [Concomitant]
     Active Substance: ACETAMINOPHEN
     Indication: PAIN
     Dosage: 1000 MG (STYRKE: 500 MGH?JST 4 GANGE DAGLIGT)
     Route: 048
     Dates: start: 20140701

REACTIONS (2)
  - Lung infiltration [Unknown]
  - Interstitial lung disease [Not Recovered/Not Resolved]

NARRATIVE: CASE EVENT DATE: 2019
